FAERS Safety Report 4633627-2 (Version None)
Quarter: 2005Q2

REPORT INFORMATION
  Report Type: 
  Country: None (occurrence: None)
  Receive Date: 20050325
  Receipt Date: 20041216
  Transmission Date: 20051028
  Serious: No
  Sender: FDA-Public Use
  Company Number: USA030536099

PATIENT
  Age: 70 Year
  Sex: Female
  Weight: 59 kg

DRUGS (11)
  1. FORTEO [Suspect]
     Indication: OSTEOPOROSIS
     Dosage: 20 UG/DAY
     Dates: start: 20030422
  2. COLACE (DOCUSATE SODIUM) [Concomitant]
  3. MILK OF MAGNESIA [Concomitant]
  4. PANCREASE (PANCRELIPASE) [Concomitant]
  5. PEPCID AC [Concomitant]
  6. PLETAL [Concomitant]
  7. CARDIAZEM (DILTIAZEM) [Concomitant]
  8. DARVOET-N 100 [Concomitant]
  9. NITROBID (GLYCERYL TRINITRATE) [Concomitant]
  10. TRICOR [Concomitant]
  11. ZOCOR [Concomitant]

REACTIONS (6)
  - GINGIVAL PAIN [None]
  - GINGIVAL SWELLING [None]
  - GLOSSODYNIA [None]
  - INJECTION SITE HAEMORRHAGE [None]
  - INJECTION SITE IRRITATION [None]
  - TONGUE DISORDER [None]
